FAERS Safety Report 9650547 (Version 2)
Quarter: 2014Q1

REPORT INFORMATION
  Report Type: Spontaneous
  Country: US (occurrence: US)
  Receive Date: 20131029
  Receipt Date: 20140115
  Transmission Date: 20141002
  Serious: Yes (Hospitalization)
  Sender: FDA-Public Use
  Company Number: US-BIOGENIDEC-2013BI102038

PATIENT
  Sex: Male

DRUGS (7)
  1. TYSABRI [Suspect]
     Indication: MULTIPLE SCLEROSIS
     Route: 042
     Dates: start: 20091211
  2. TRILEPTAL [Concomitant]
     Indication: TRIGEMINAL NEURALGIA
     Route: 048
     Dates: start: 20130620
  3. TEGRETOL [Concomitant]
     Indication: TRIGEMINAL NEURALGIA
     Route: 048
     Dates: start: 20130409
  4. BACLOFEN [Concomitant]
     Indication: MUSCLE SPASMS
     Route: 048
     Dates: start: 20130819
  5. ZOLOFT [Concomitant]
     Route: 048
     Dates: start: 20130620
  6. TIZANIDINE HCL [Concomitant]
     Route: 048
     Dates: start: 20121211
  7. FLOMAX [Concomitant]
     Route: 048
     Dates: start: 20130409

REACTIONS (1)
  - Aortic aneurysm [Not Recovered/Not Resolved]
